FAERS Safety Report 21425498 (Version 2)
Quarter: 2022Q4

REPORT INFORMATION
  Report Type: Report from Study
  Country: US (occurrence: US)
  Receive Date: 20221008
  Receipt Date: 20221114
  Transmission Date: 20230113
  Serious: No
  Sender: FDA-Public Use
  Company Number: US-ABBVIE-4138615

PATIENT
  Sex: Female

DRUGS (3)
  1. SKYRIZI [Suspect]
     Active Substance: RISANKIZUMAB-RZAA
     Indication: Psoriasis
     Dosage: WEEK 0,?FORM STRENGTH: 150 MILLIGRAM
     Route: 058
     Dates: start: 20220811, end: 20220811
  2. SKYRIZI [Suspect]
     Active Substance: RISANKIZUMAB-RZAA
     Dosage: WEEK 4,?FORM STRENGTH: 150 MILLIGRAM
     Route: 058
     Dates: start: 20221005, end: 20221005
  3. METHOTREXATE [Concomitant]
     Active Substance: METHOTREXATE
     Indication: Product used for unknown indication

REACTIONS (6)
  - Psoriasis [Not Recovered/Not Resolved]
  - Anxiety [Unknown]
  - General physical health deterioration [Unknown]
  - Cognitive disorder [Unknown]
  - Autoimmune disorder [Unknown]
  - Speech disorder [Unknown]

NARRATIVE: CASE EVENT DATE: 20220101
